FAERS Safety Report 21853600 (Version 3)
Quarter: 2023Q1

REPORT INFORMATION
  Report Type: Spontaneous
  Country: US (occurrence: US)
  Receive Date: 20230112
  Receipt Date: 20230118
  Transmission Date: 20230418
  Serious: No
  Sender: FDA-Public Use
  Company Number: US-SA-SAC20230111000764

PATIENT
  Sex: Female

DRUGS (1)
  1. AMBIEN CR [Suspect]
     Active Substance: ZOLPIDEM TARTRATE
     Indication: Insomnia
     Dosage: UNK
     Route: 065

REACTIONS (5)
  - Sleep disorder [Unknown]
  - Somnolence [Unknown]
  - Restless legs syndrome [Unknown]
  - Intentional product misuse [Unknown]
  - Drug ineffective [Unknown]
